FAERS Safety Report 25974957 (Version 1)
Quarter: 2025Q4

REPORT INFORMATION
  Report Type: Report from Study
  Country: EU (occurrence: EU)
  Receive Date: 20251029
  Receipt Date: 20251029
  Transmission Date: 20260117
  Serious: Yes (Other)
  Sender: JOHNSON AND JOHNSON
  Company Number: EU-JNJFOC-20251029287

PATIENT
  Age: 41 Year
  Sex: Female

DRUGS (1)
  1. CILTACABTAGENE AUTOLEUCEL [Suspect]
     Active Substance: CILTACABTAGENE AUTOLEUCEL
     Indication: Plasma cell myeloma
     Dosage: 0.6 X10^6 CAR-POSITIVE VIABLE T CELLS/KG
     Route: 065
     Dates: start: 20250305, end: 20250305

REACTIONS (5)
  - Cytokine release syndrome [Recovered/Resolved]
  - Chronic kidney disease [Not Recovered/Not Resolved]
  - Dry eye [Recovered/Resolved]
  - Conjunctivitis [Recovered/Resolved]
  - Cystitis [Recovered/Resolved]

NARRATIVE: CASE EVENT DATE: 20250310
